FAERS Safety Report 23825743 (Version 1)
Quarter: 2024Q2

REPORT INFORMATION
  Report Type: Spontaneous
  Country: JP (occurrence: JP)
  Receive Date: 20240507
  Receipt Date: 20240507
  Transmission Date: 20240715
  Serious: Yes (Other)
  Sender: FDA-Public Use
  Company Number: JP-ACS-20240148

PATIENT
  Age: 52 Year
  Sex: Male

DRUGS (1)
  1. CEFAZOLIN [Suspect]
     Active Substance: CEFAZOLIN
     Indication: Staphylococcal sepsis

REACTIONS (1)
  - Cutaneous vasculitis [Recovered/Resolved with Sequelae]
